FAERS Safety Report 5303421-8 (Version None)
Quarter: 2007Q2

REPORT INFORMATION
  Report Type: 
  Country: None (occurrence: None)
  Receive Date: 20070420
  Receipt Date: 20070412
  Transmission Date: 20071010
  Serious: Yes (Other)
  Sender: FDA-Public Use
  Company Number: JP-ROCHE-493214

PATIENT
  Age: 66 Year
  Sex: Female
  Weight: 42 kg

DRUGS (8)
  1. TAMIFLU [Suspect]
     Route: 048
     Dates: start: 20070313, end: 20070314
  2. ACETAMINOPHEN [Suspect]
     Route: 048
     Dates: start: 20070313, end: 20070314
  3. CLARITHROMYCIN [Concomitant]
     Route: 048
  4. MEDICON [Concomitant]
     Route: 048
  5. DASEN [Concomitant]
     Route: 048
  6. MUCOSOLVAN [Concomitant]
     Route: 048
  7. MUCODYNE [Concomitant]
     Route: 048
  8. MYSLEE [Concomitant]
     Route: 048

REACTIONS (1)
  - DEPRESSION [None]
